FAERS Safety Report 17548577 (Version 1)
Quarter: 2020Q1

REPORT INFORMATION
  Report Type: Spontaneous
  Country: TR (occurrence: TR)
  Receive Date: 20200317
  Receipt Date: 20200317
  Transmission Date: 20200409
  Serious: Yes (Hospitalization, Other)
  Sender: FDA-Public Use
  Company Number: TR-ASTRAZENECA-2020SE37698

PATIENT
  Sex: Female

DRUGS (13)
  1. LAMICTAT [Concomitant]
     Dosage: ONCE A DAY ONE TABLET IN THE EVENINGS-THE PATIENT STARTED IT AFTER BRAIN SURGERY, USING FOR 14-15...
  2. BELOC [Concomitant]
     Dosage: ONCE A DAY ONE TABLET IN THE MORNINGS-USING FOR A LONG TIME
  3. CORASPIN [Concomitant]
     Active Substance: ASPIRIN
     Dosage: ONCE A DAY ONE TABLET IN THE MORNINGS-USING FOR A LONG TIME
  4. DOXIUM [Concomitant]
     Active Substance: CALCIUM DOBESILATE
     Dosage: TWICE A DAY ONE TABLET -USING FOR A LONG TIME.
  5. MAGNESIUM [Concomitant]
     Active Substance: MAGNESIUM
     Dosage: USING FOR A LONG TIME
  6. CO DIOVAN [Concomitant]
     Active Substance: HYDROCHLOROTHIAZIDE\VALSARTAN
     Dosage: ONCE A DAY ONE TABLET IN THE MORNINGS-USING FOR A LONG TIME
  7. CITOLES [Concomitant]
     Active Substance: ESCITALOPRAM OXALATE
     Dosage: ONCE A DAY ONE TABLET IN THE MORNINGS-USING FOR A LONG TIME.
  8. IRESSA [Suspect]
     Active Substance: GEFITINIB
     Indication: LUNG NEOPLASM MALIGNANT
     Dosage: ONCE A DAY ONE TABLET
     Route: 048
     Dates: start: 201912, end: 20200313
  9. IRESSA [Suspect]
     Active Substance: GEFITINIB
     Indication: LUNG NEOPLASM MALIGNANT
     Route: 048
  10. TEBOKAN [Concomitant]
     Active Substance: GINKGO
     Dosage: ONCE A DAY ONE TABLET IN THE EVENINGS-THE PATIENT STARTED IT AFTER BRAIN SURGERY, USING FOR 14-15...
  11. AVIL [Concomitant]
     Active Substance: PHENIRAMINE
     Dosage: ONCE A DAY ONE TABLET IN THE EVENINGS-THE PATIENT STARTED IT AFTER BRAIN SURGERY, USING FOR 14-15...
  12. LIPITOR [Concomitant]
     Active Substance: ATORVASTATIN CALCIUM
     Dosage: ONCE A DAY ONE TABLET IN THE EVENINGS-THE PATIENT STARTED IT AFTER BRAIN SURGERY, USING FOR 14-15...
  13. RUPAFIN [Concomitant]
     Active Substance: RUPATADINE FUMARATE
     Dosage: TWICE A DAY ONE TABLET -USING FOR A LONG TIME.

REACTIONS (4)
  - Myocardial infarction [Unknown]
  - Cardiac failure [Unknown]
  - Upper limb fracture [Unknown]
  - Hip fracture [Unknown]

NARRATIVE: CASE EVENT DATE: 20200311
